FAERS Safety Report 17840930 (Version 1)
Quarter: 2020Q2

REPORT INFORMATION
  Report Type: Spontaneous
  Country: US (occurrence: US)
  Receive Date: 20200529
  Receipt Date: 20200529
  Transmission Date: 20200714
  Serious: No
  Sender: FDA-Public Use
  Company Number: US-LEXICON PHARMACEUTICALS, INC-20-1606-00382

PATIENT
  Age: 60 Year
  Sex: Female

DRUGS (27)
  1. FEXOFENADINE HYDROCHLORIDE. [Concomitant]
     Active Substance: FEXOFENADINE HYDROCHLORIDE
  2. OCTREOTIDE ACETATE. [Concomitant]
     Active Substance: OCTREOTIDE ACETATE
  3. AMLODIPINE BESYLATE. [Concomitant]
     Active Substance: AMLODIPINE BESYLATE
  4. DICYCLOMINE HCL [Concomitant]
     Active Substance: DICYCLOMINE HYDROCHLORIDE
  5. XERMELO [Suspect]
     Active Substance: TELOTRISTAT ETHYL
     Indication: CARCINOID SYNDROME
     Dates: start: 20170421
  6. LOMOTIL [Concomitant]
     Active Substance: ATROPINE SULFATE\DIPHENOXYLATE HYDROCHLORIDE
  7. DIOVAN [Concomitant]
     Active Substance: VALSARTAN
  8. XARELTO [Concomitant]
     Active Substance: RIVAROXABAN
  9. WELLBUTRIN XL [Concomitant]
     Active Substance: BUPROPION HYDROCHLORIDE
  10. PREDNISONE. [Concomitant]
     Active Substance: PREDNISONE
  11. CREON [Concomitant]
     Active Substance: PANCRELIPASE AMYLASE\PANCRELIPASE LIPASE\PANCRELIPASE PROTEASE
  12. SINGULAIR [Concomitant]
     Active Substance: MONTELUKAST SODIUM
  13. POLYETHYLENE GLYCOL NF [Concomitant]
  14. CALCIUM CARBONATE. [Concomitant]
     Active Substance: CALCIUM CARBONATE
  15. ROPINIROLE HCL [Concomitant]
     Active Substance: ROPINIROLE HYDROCHLORIDE
  16. VITAMIN B COMPLEX [Concomitant]
     Active Substance: CYANOCOBALAMIN\DEXPANTHENOL\NIACINAMIDE\PYRIDOXINE HYDROCHLORIDE\RIBOFLAVIN 5^-PHOSPHATE SODIUM\THIAMINE HYDROCHLORIDE\VITAMIN B COMPLEX
  17. MAGNESIUM OXIDE LIGHT [Concomitant]
  18. POTASSIUM CHLORIDE. [Concomitant]
     Active Substance: POTASSIUM CHLORIDE
  19. LEVOTHYROXINE SODIUM. [Concomitant]
     Active Substance: LEVOTHYROXINE SODIUM
  20. TYLENOL [Concomitant]
     Active Substance: ACETAMINOPHEN
  21. GABAPENTIN. [Concomitant]
     Active Substance: GABAPENTIN
  22. LORAZEPAM. [Concomitant]
     Active Substance: LORAZEPAM
  23. MULTIVITAMIN [Concomitant]
     Active Substance: VITAMINS
  24. ALBUTEROL. [Concomitant]
     Active Substance: ALBUTEROL
  25. FUROSEMIDE. [Concomitant]
     Active Substance: FUROSEMIDE
  26. NITROGLYCERIN. [Concomitant]
     Active Substance: NITROGLYCERIN
  27. ASCORBIC ACID. [Concomitant]
     Active Substance: ASCORBIC ACID

REACTIONS (1)
  - Decreased appetite [Unknown]
